FAERS Safety Report 11273754 (Version 8)
Quarter: 2016Q3

REPORT INFORMATION
  Report Type: Report from Study
  Country: JP (occurrence: JP)
  Receive Date: 20150715
  Receipt Date: 20160809
  Transmission Date: 20161109
  Serious: Yes (Hospitalization, Other)
  Sender: FDA-Public Use
  Company Number: JP-ALEXION PHARMACEUTICALS INC.-A201502558

PATIENT
  Age: 67 Year
  Sex: Female
  Weight: 41 kg

DRUGS (13)
  1. SOLIRIS [Suspect]
     Active Substance: ECULIZUMAB
     Dosage: 600 MG, SINGLE
     Route: 042
     Dates: start: 20150121, end: 20150121
  2. PREDONINE [Concomitant]
     Active Substance: PREDNISOLONE\PREDNISOLONE ACETATE\PREDNISOLONE SODIUM SUCCINATE
     Indication: ANTI-GLOMERULAR BASEMENT MEMBRANE ANTIBODY
     Dosage: -7.5MG TAPERING, QD
     Route: 048
     Dates: start: 20150203, end: 20150512
  3. CEFEPIME [Concomitant]
     Active Substance: CEFEPIME HYDROCHLORIDE
     Indication: PROPHYLAXIS
     Dosage: 1 G, QD
     Route: 041
     Dates: start: 20150116, end: 20150126
  4. NESP [Concomitant]
     Active Substance: DARBEPOETIN ALFA
     Indication: NEPHROGENIC ANAEMIA
     Dosage: 120 ?G, QW
     Route: 042
     Dates: start: 20150202
  5. SOLIRIS [Suspect]
     Active Substance: ECULIZUMAB
     Dosage: 1200 MG, Q2W
     Route: 042
     Dates: start: 20150213, end: 20150619
  6. SOL-MELCORT [Concomitant]
     Active Substance: METHYLPREDNISOLONE SODIUM SUCCINATE
     Indication: HAEMOLYTIC URAEMIC SYNDROME
     Dosage: 1 G, QD
     Route: 041
     Dates: start: 20150120, end: 20150122
  7. BAKTAR [Concomitant]
     Active Substance: SULFAMETHOXAZOLE\TRIMETHOPRIM
     Indication: PROPHYLAXIS
     Dosage: 4 G, QD
     Route: 048
     Dates: start: 20150120, end: 20150202
  8. SOLIRIS [Suspect]
     Active Substance: ECULIZUMAB
     Dosage: 900 MG, EVERY 3 WEEKS
     Route: 042
     Dates: start: 20150731
  9. PURSENNID                          /00142207/ [Concomitant]
     Active Substance: SENNOSIDES A AND B
     Indication: FAECALOMA
     Route: 048
  10. SOLIRIS [Suspect]
     Active Substance: ECULIZUMAB
     Dosage: 1200 MG, EVERY 3 WEEKS
     Route: 042
     Dates: start: 20150710, end: 20150710
  11. SOLIRIS [Suspect]
     Active Substance: ECULIZUMAB
     Indication: HAEMOLYTIC URAEMIC SYNDROME
     Dosage: 900 MG, QW
     Route: 042
     Dates: start: 20150117, end: 20150117
  12. SOLIRIS [Suspect]
     Active Substance: ECULIZUMAB
     Dosage: 900 MG, QW
     Route: 042
     Dates: start: 20150124, end: 20150206
  13. FESIN                              /00023550/ [Concomitant]
     Active Substance: IRON SUCROSE
     Indication: IRON DEFICIENCY ANAEMIA
     Dosage: 40 MG, TIW
     Route: 042
     Dates: start: 20150706, end: 20150724

REACTIONS (14)
  - Cytopenia [Recovered/Resolved with Sequelae]
  - Pneumonia [Recovering/Resolving]
  - Skin erosion [Recovering/Resolving]
  - Immunosuppression [Not Recovered/Not Resolved]
  - Device related infection [Recovering/Resolving]
  - Clostridium difficile colitis [Recovering/Resolving]
  - Condition aggravated [Not Recovered/Not Resolved]
  - Cytomegalovirus infection [Recovering/Resolving]
  - Venous thrombosis [Recovered/Resolved]
  - Nausea [Not Recovered/Not Resolved]
  - Purpura [Recovering/Resolving]
  - Inappropriate schedule of drug administration [Not Recovered/Not Resolved]
  - Vomiting [Not Recovered/Not Resolved]
  - Enterococcal infection [Recovering/Resolving]

NARRATIVE: CASE EVENT DATE: 20150202
